FAERS Safety Report 8116156-3 (Version None)
Quarter: 2012Q1

REPORT INFORMATION
  Report Type: 
  Country: None (occurrence: None)
  Receive Date: 20120206
  Receipt Date: 20120130
  Transmission Date: 20120608
  Serious: Yes (Life-Threatening, Hospitalization, Other)
  Sender: FDA-Public Use
  Company Number: US-BAYER-2012-009707

PATIENT
  Sex: Female

DRUGS (1)
  1. MIRENA [Suspect]
     Dosage: 20 ?G, CONT
     Route: 015

REACTIONS (5)
  - ASCITES [None]
  - SEPSIS [None]
  - ABDOMINAL PAIN [None]
  - INFECTIOUS PERITONITIS [None]
  - VAGINITIS BACTERIAL [None]
